FAERS Safety Report 4578308-9 (Version None)
Quarter: 2005Q1

REPORT INFORMATION
  Report Type: 
  Country: None (occurrence: None)
  Receive Date: 20050209
  Receipt Date: 20050121
  Transmission Date: 20050727
  Serious: Yes (Hospitalization)
  Sender: FDA-Public Use
  Company Number: US_0501111228

PATIENT
  Age: 17 Year
  Sex: Male
  Weight: 77 kg

DRUGS (5)
  1. STRATTERA [Suspect]
     Indication: ATTENTION DEFICIT/HYPERACTIVITY DISORDER
     Dosage: 120 MG/1 DAY
     Dates: start: 20040101
  2. ADDERALL XR 10 [Concomitant]
  3. LAMICTAL [Concomitant]
  4. NEURONTIN (GABAPENTIN PFIZER) [Concomitant]
  5. TETRACYCLINE [Concomitant]

REACTIONS (7)
  - EFFUSION [None]
  - HERPES SIMPLEX [None]
  - HYPOAESTHESIA [None]
  - LUNG DISORDER [None]
  - LUPUS-LIKE SYNDROME [None]
  - PAIN [None]
  - PULMONARY EMBOLISM [None]
